FAERS Safety Report 6312986-9 (Version None)
Quarter: 2009Q3

REPORT INFORMATION
  Report Type: 
  Country: None (occurrence: None)
  Receive Date: 20090818
  Receipt Date: 20070831
  Transmission Date: 20100115
  Serious: Yes (Other)
  Sender: FDA-Public Use
  Company Number: US-ASTRAZENECA-2007UW10760

PATIENT
  Age: 13505 Day
  Sex: Female
  Weight: 101.6 kg

DRUGS (32)
  1. SEROQUEL [Suspect]
     Indication: DEPRESSION
     Dosage: STRENGTH- 75MG, 100MG DOSE- 75MG-100 MG DAILY
     Route: 048
     Dates: start: 20010313
  2. SEROQUEL [Suspect]
     Indication: SCHIZOPHRENIA
     Dosage: STRENGTH- 75MG, 100MG DOSE- 75MG-100 MG DAILY
     Route: 048
     Dates: start: 20010313
  3. SEROQUEL [Suspect]
     Indication: PSYCHOTIC DISORDER
     Dosage: STRENGTH- 75MG, 100MG DOSE- 75MG-100 MG DAILY
     Route: 048
     Dates: start: 20010313
  4. SEROQUEL [Suspect]
     Indication: INSOMNIA
     Dosage: STRENGTH- 75MG, 100MG DOSE- 75MG-100 MG DAILY
     Route: 048
     Dates: start: 20010313
  5. SEROQUEL [Suspect]
     Route: 048
     Dates: start: 20030101, end: 20040101
  6. SEROQUEL [Suspect]
     Route: 048
     Dates: start: 20030101, end: 20040101
  7. SEROQUEL [Suspect]
     Route: 048
     Dates: start: 20030101, end: 20040101
  8. SEROQUEL [Suspect]
     Route: 048
     Dates: start: 20030101, end: 20040101
  9. RISPERDAL [Suspect]
     Indication: DEPRESSION
     Dosage: STRENGTH- 1MG, 2MG  DOSE- 1 MG-2MG DAILY
     Route: 048
     Dates: start: 20010215
  10. RISPERDAL [Suspect]
     Indication: SCHIZOPHRENIA
     Dosage: STRENGTH- 1MG, 2MG  DOSE- 1 MG-2MG DAILY
     Route: 048
     Dates: start: 20010215
  11. RISPERDAL [Suspect]
     Indication: HALLUCINATION
     Dosage: STRENGTH- 1MG, 2MG  DOSE- 1 MG-2MG DAILY
     Route: 048
     Dates: start: 20010215
  12. PHENERGAN [Concomitant]
     Indication: HEADACHE
     Dates: start: 20010314
  13. NEXIUM [Concomitant]
     Indication: EPIGASTRIC DISCOMFORT
     Route: 048
     Dates: start: 20020104
  14. NEXIUM [Concomitant]
     Indication: GASTROOESOPHAGEAL REFLUX DISEASE
     Route: 048
     Dates: start: 20020104
  15. LIPITOR [Concomitant]
     Dates: start: 20020603
  16. AMBIEN [Concomitant]
     Dates: start: 20020904
  17. TRAZODONE HCL [Concomitant]
     Dosage: STRENGTH- 150MG, 225MG, 300 MG  DOSE- 150-300 MG
     Route: 048
     Dates: start: 20010313
  18. ABILIFY [Concomitant]
     Dates: start: 20041221
  19. ALTACE [Concomitant]
     Route: 048
     Dates: start: 20020603
  20. VIOXX [Concomitant]
     Indication: PLANTAR FASCIITIS
     Dates: start: 20030806
  21. CLONIDINE [Concomitant]
     Route: 048
     Dates: start: 20050726
  22. PROZAC [Concomitant]
     Dosage: 90 M, TWO/ WEEK
     Dates: start: 20050726
  23. SERZONE [Concomitant]
     Dates: start: 20010726
  24. BENZONATATE [Concomitant]
     Dates: start: 20021221
  25. AVELOX [Concomitant]
     Dates: start: 20030114
  26. NUBAIN [Concomitant]
     Indication: HEADACHE
     Dates: start: 20010314
  27. ZOCOR [Concomitant]
     Indication: LIPIDS INCREASED
     Dates: start: 20030806
  28. AXID [Concomitant]
     Dates: start: 20010314
  29. ZYRTEC [Concomitant]
     Dates: start: 20010314
  30. ZITHROMAX [Concomitant]
     Indication: BRONCHITIS
     Dates: start: 20070309
  31. PAXIL [Concomitant]
     Dosage: ONE TO TWO DAILY
     Route: 048
     Dates: start: 20020904
  32. IMITREX [Concomitant]
     Dosage: AS NEEDED
     Dates: start: 20020104

REACTIONS (2)
  - NEUROPATHY PERIPHERAL [None]
  - TYPE 2 DIABETES MELLITUS [None]
